FAERS Safety Report 6959531-2 (Version None)
Quarter: 2010Q3

REPORT INFORMATION
  Report Type: 
  Country: None (occurrence: None)
  Receive Date: 20100827
  Receipt Date: 20100817
  Transmission Date: 20110219
  Serious: Yes (Hospitalization, Congenital Anomaly)
  Sender: FDA-Public Use
  Company Number: 2010P1000908

PATIENT
  Age: 0 Year
  Sex: Male
  Weight: 2.03 kg

DRUGS (2)
  1. TRAMADOL HCL [Suspect]
     Indication: JOINT INJURY
     Dosage: 600-800 MG;QD;PO
  2. TORADOL [Concomitant]

REACTIONS (11)
  - AGITATION NEONATAL [None]
  - BETA HAEMOLYTIC STREPTOCOCCAL INFECTION [None]
  - CHLAMYDIAL INFECTION [None]
  - CONVULSION [None]
  - DRUG WITHDRAWAL SYNDROME NEONATAL [None]
  - FREQUENT BOWEL MOVEMENTS [None]
  - HYPOPHAGIA [None]
  - IRRITABILITY [None]
  - MATERNAL DRUGS AFFECTING FOETUS [None]
  - PREMATURE BABY [None]
  - SEPSIS NEONATAL [None]
